FAERS Safety Report 5048052-2 (Version None)
Quarter: 2006Q3

REPORT INFORMATION
  Report Type: 
  Country: None (occurrence: None)
  Receive Date: 20060710
  Receipt Date: 20060710
  Transmission Date: 20061208
  Serious: Yes (Life-Threatening, Other)
  Sender: FDA-Public Use
  Company Number: None

PATIENT
  Age: 63 Year
  Sex: Female
  Weight: 67.1324 kg

DRUGS (2)
  1. CIPRO [Suspect]
     Indication: DIARRHOEA HAEMORRHAGIC
     Dosage: 1      2X DAY   PO
     Route: 048
     Dates: start: 20060627, end: 20060704
  2. FLAGYL [Suspect]
     Indication: DIARRHOEA HAEMORRHAGIC
     Dosage: 1    4X DAY   PO
     Route: 048
     Dates: start: 20060627, end: 20060704

REACTIONS (5)
  - ANOREXIA [None]
  - DEPRESSION [None]
  - DISTURBANCE IN ATTENTION [None]
  - INSOMNIA [None]
  - NERVOUSNESS [None]
